FAERS Safety Report 10959720 (Version 4)
Quarter: 2015Q2

REPORT INFORMATION
  Report Type: Report from Study
  Country: CA (occurrence: CA)
  Receive Date: 20150327
  Receipt Date: 20150511
  Transmission Date: 20150821
  Serious: Yes (Other)
  Sender: FDA-Public Use
  Company Number: CA-ROCHE-1556764

PATIENT
  Sex: Male

DRUGS (12)
  1. OXALIPLATIN. [Suspect]
     Active Substance: OXALIPLATIN
     Indication: COLON CANCER
     Dosage: TREATMENT WITH CAPECITABINE (CAPOX)
     Route: 065
     Dates: start: 2013
  2. IRINOTECAN [Suspect]
     Active Substance: IRINOTECAN
     Indication: COLON CANCER
     Dosage: CHEMOTHERPY WITH BEVACIZUMAB
     Route: 065
     Dates: start: 2010
  3. 5-FU [Suspect]
     Active Substance: FLUOROURACIL
     Indication: COLON CANCER
     Dosage: CHEMOTHERPY WITH BEVACIZUMAB
     Route: 065
     Dates: start: 2010
  4. VITAMIN C [Concomitant]
     Active Substance: ASCORBIC ACID
  5. AVASTIN [Suspect]
     Active Substance: BEVACIZUMAB
     Indication: COLON CANCER
     Dosage: UNKNOWN THERAPY DETAILS
     Route: 065
     Dates: start: 2010
  6. FOLINIC ACID [Suspect]
     Active Substance: LEUCOVORIN
     Indication: COLON CANCER
     Dosage: CHEMOTHERPY WITH BEVACIZUMAB
     Route: 065
     Dates: start: 2010
  7. XARELTO [Concomitant]
     Active Substance: RIVAROXABAN
     Dosage: TAKEN AS PRECAUTION BECAUSE OF PROTEIN C DEFICIENCY.
     Route: 065
  8. FISH OIL [Concomitant]
     Active Substance: FISH OIL
  9. CAPECITABINE. [Suspect]
     Active Substance: CAPECITABINE
     Indication: COLON CANCER
     Dosage: TREATMENT WITH OXALIPLATIN (CAPOX)
     Route: 065
     Dates: start: 2013
  10. APO-CIMETIDINE [Concomitant]
     Dosage: FOR PAST 2 YEARS.
     Route: 065
  11. AVASTIN [Suspect]
     Active Substance: BEVACIZUMAB
     Route: 042
     Dates: start: 20150417
  12. CELEBREX [Concomitant]
     Active Substance: CELECOXIB
     Dosage: FOR PAST 2 YEARS.
     Route: 065

REACTIONS (5)
  - Pulmonary mass [Unknown]
  - Protein urine [Unknown]
  - Hyperthermia [Unknown]
  - Decreased appetite [Not Recovered/Not Resolved]
  - Body temperature decreased [Unknown]
